FAERS Safety Report 5788988-8 (Version None)
Quarter: 2008Q2

REPORT INFORMATION
  Report Type: 
  Country: None (occurrence: None)
  Receive Date: 20080626
  Receipt Date: 20071218
  Transmission Date: 20081010
  Serious: No
  Sender: FDA-Public Use
  Company Number: US-ASTRAZENECA-2007UW28654

PATIENT
  Age: 100 Year
  Sex: Female
  Weight: 34 kg

DRUGS (5)
  1. PULMICORT-100 [Suspect]
     Indication: ASTHMA
     Route: 055
  2. ALBUTEROL [Concomitant]
     Route: 055
  3. PERCOCET [Concomitant]
  4. COUMADIN [Concomitant]
  5. TEMAZEPAM [Concomitant]

REACTIONS (5)
  - ASTHENIA [None]
  - COUGH [None]
  - INFECTION [None]
  - PNEUMONIA [None]
  - RHINORRHOEA [None]
